FAERS Safety Report 5633966-2 (Version None)
Quarter: 2008Q1

REPORT INFORMATION
  Report Type: 
  Country: None (occurrence: None)
  Receive Date: 20080131
  Receipt Date: 20070327
  Transmission Date: 20080703
  Serious: Yes (Other)
  Sender: FDA-Public Use
  Company Number: 154497USA

PATIENT

DRUGS (1)
  1. COPAXONE [Suspect]

REACTIONS (1)
  - PULMONARY EMBOLISM [None]
